FAERS Safety Report 5145735-0 (Version None)
Quarter: 2006Q4

REPORT INFORMATION
  Report Type: 
  Country: None (occurrence: None)
  Receive Date: 20061102
  Receipt Date: 20061025
  Transmission Date: 20070319
  Serious: Yes (Other)
  Sender: FDA-Public Use
  Company Number: 2006131543

PATIENT
  Age: 71 Year
  Sex: Male
  Weight: 62 kg

DRUGS (7)
  1. HYDROXYZINE HYDROCHLORIDE [Suspect]
     Indication: ANAESTHETIC PREMEDICATION
     Dosage: 50 MG, INTRAMUSCULAR
     Route: 030
     Dates: start: 20050301
  2. FENTANYL [Concomitant]
  3. PROPOFOL [Concomitant]
  4. VECURONIUM        (VECURONIUM) [Concomitant]
  5. NITROUS OXIDE                         (NITROUS OXIDE) [Concomitant]
  6. OXYGEN              (OXYGEN) [Concomitant]
  7. SEVOFLURANE [Concomitant]

REACTIONS (10)
  - ALANINE AMINOTRANSFERASE INCREASED [None]
  - ASPARTATE AMINOTRANSFERASE INCREASED [None]
  - BLOOD AMYLASE INCREASED [None]
  - BLOOD BILIRUBIN INCREASED [None]
  - BLOOD LACTATE DEHYDROGENASE INCREASED [None]
  - HAEMOLYSIS [None]
  - HYPERTHERMIA MALIGNANT [None]
  - JAUNDICE [None]
  - LIVER DISORDER [None]
  - POSTOPERATIVE FEVER [None]
